FAERS Safety Report 6497755-1 (Version None)
Quarter: 2009Q4

REPORT INFORMATION
  Report Type: 
  Country: None (occurrence: None)
  Receive Date: 20091215
  Receipt Date: 20091204
  Transmission Date: 20100525
  Serious: Yes (Other)
  Sender: FDA-Public Use
  Company Number: CA-JNJFOC-20091202767

PATIENT
  Sex: Male

DRUGS (4)
  1. REMICADE [Suspect]
     Route: 042
     Dates: start: 20091001
  2. REMICADE [Suspect]
     Indication: CROHN'S DISEASE
     Route: 042
     Dates: start: 20091001
  3. TYLENOL W/ CODEINE NO. 3 [Concomitant]
  4. PREDNISONE [Concomitant]

REACTIONS (6)
  - HEADACHE [None]
  - HYPOTENSION [None]
  - INFUSION RELATED REACTION [None]
  - MENTAL IMPAIRMENT [None]
  - PAIN [None]
  - VISION BLURRED [None]
